FAERS Safety Report 19179861 (Version 1)
Quarter: 2021Q2

REPORT INFORMATION
  Report Type: Spontaneous
  Country: US (occurrence: US)
  Receive Date: 20210426
  Receipt Date: 20210426
  Transmission Date: 20210717
  Serious: No
  Sender: FDA-Public Use
  Company Number: None

PATIENT
  Age: 83 Year
  Sex: Male
  Weight: 63.5 kg

DRUGS (9)
  1. CASIRIVIMAB. [Suspect]
     Active Substance: CASIRIVIMAB
     Indication: COVID-19
     Dosage: ?          OTHER FREQUENCY:ONCE;?
     Route: 042
     Dates: start: 20210419, end: 20210419
  2. IMDEVIMAB. [Suspect]
     Active Substance: IMDEVIMAB
     Indication: COVID-19
     Dosage: ?          OTHER FREQUENCY:ONCE;?
     Route: 042
     Dates: start: 20210419, end: 20210419
  3. HEPARIN [Concomitant]
     Active Substance: HEPARIN SODIUM
     Dates: start: 20210419, end: 20210421
  4. METOPROLOL. [Concomitant]
     Active Substance: METOPROLOL
     Dates: start: 20210419, end: 20210419
  5. SENNA [Concomitant]
     Active Substance: SENNA LEAF\SENNOSIDES\SENNOSIDES A AND B
     Dates: start: 20210420, end: 20210420
  6. TAMSULOSIN [Concomitant]
     Active Substance: TAMSULOSIN
  7. HYDRALZINE [Concomitant]
     Dates: start: 20210419, end: 20210419
  8. RISPERIDONE. [Concomitant]
     Active Substance: RISPERIDONE
  9. POTASSIUM CHLORIDE. [Concomitant]
     Active Substance: POTASSIUM CHLORIDE
     Dates: start: 20210421, end: 20210421

REACTIONS (15)
  - Hyporesponsive to stimuli [None]
  - Prostate cancer [None]
  - Fall [None]
  - Confusional state [None]
  - Oxygen saturation decreased [None]
  - Acute kidney injury [None]
  - Hypotension [None]
  - Dehydration [None]
  - Depressed level of consciousness [None]
  - Blood pressure increased [None]
  - Atrial fibrillation [None]
  - Mental status changes [None]
  - Medication error [None]
  - Pyrexia [None]
  - General physical health deterioration [None]

NARRATIVE: CASE EVENT DATE: 20210419
